FAERS Safety Report 11182867 (Version 1)
Quarter: 2015Q2

REPORT INFORMATION
  Report Type: Other
  Country: CA (occurrence: CA)
  Receive Date: 20150611
  Receipt Date: 20150611
  Transmission Date: 20150821
  Serious: Yes (Other)
  Sender: FDA-Public Use
  Company Number: CA-APOTEX-2015AP009745

PATIENT
  Age: 9 Year
  Sex: Male
  Weight: 44 kg

DRUGS (1)
  1. APO-VALPROIC [Suspect]
     Active Substance: VALPROIC ACID
     Indication: EPILEPSY
     Dosage: 400 MG, BID
     Route: 048

REACTIONS (6)
  - Irritability [Recovered/Resolved]
  - Self injurious behaviour [Recovered/Resolved]
  - Abnormal behaviour [Recovered/Resolved]
  - Aggression [Recovered/Resolved]
  - Confusional state [Recovered/Resolved]
  - Somnolence [Recovered/Resolved]
